FAERS Safety Report 22364118 (Version 1)
Quarter: 2023Q2

REPORT INFORMATION
  Report Type: Spontaneous
  Country: US (occurrence: None)
  Receive Date: 20230525
  Receipt Date: 20230525
  Transmission Date: 20230721
  Serious: No
  Sender: FDA-Public Use
  Company Number: 2023A120443

PATIENT

DRUGS (1)
  1. PRILOSEC OTC [Suspect]
     Active Substance: OMEPRAZOLE MAGNESIUM
     Indication: Dyspepsia
     Dosage: ONLY HAVE TO TAKE ONE
     Route: 048

REACTIONS (5)
  - Dyspepsia [Unknown]
  - Drug ineffective [Unknown]
  - Therapeutic product effect decreased [Unknown]
  - Incorrect product administration duration [Unknown]
  - Product size issue [Unknown]

NARRATIVE: CASE EVENT DATE: 20230401
